FAERS Safety Report 8822618 (Version 8)
Quarter: 2013Q3

REPORT INFORMATION
  Report Type: Spontaneous
  Country: US (occurrence: US)
  Receive Date: 20121003
  Receipt Date: 20130726
  Transmission Date: 20140515
  Serious: Yes (Other)
  Sender: FDA-Public Use
  Company Number: US-009507513-1208USA010227

PATIENT
  Age: 49 Year
  Sex: Female
  Weight: 97.51 kg

DRUGS (9)
  1. PEGINTRON [Suspect]
     Indication: HEPATITIS C
     Dosage: REDIPEN, 150 MICROGRAM, QW
     Dates: start: 20120817, end: 20130329
  2. VICTRELIS [Suspect]
     Indication: HEPATITIS C
     Dosage: 2400 MG, QD,
     Route: 048
     Dates: start: 20121121, end: 20130329
  3. COPEGUS [Suspect]
     Indication: HEPATITIS C
     Dosage: UNK
     Route: 048
     Dates: start: 20120817, end: 20130329
  4. LITHIUM [Concomitant]
     Indication: BIPOLAR DISORDER
     Dosage: 1200 MG, QD
  5. LISINOPRIL [Concomitant]
     Dosage: UNK
     Route: 048
  6. TRAZODONE HYDROCHLORIDE [Concomitant]
     Dosage: UNK
  7. OMEPRAZOLE [Concomitant]
     Dosage: UNK
     Route: 048
  8. SOMA [Concomitant]
     Dosage: UNK, PRN
  9. WELLBUTRIN [Concomitant]
     Dosage: UNK

REACTIONS (71)
  - Mania [Recovering/Resolving]
  - Mania [Unknown]
  - Bone pain [Unknown]
  - Nervousness [Unknown]
  - Renal disorder [Unknown]
  - Decreased appetite [Unknown]
  - Temperature intolerance [Unknown]
  - Mental disorder [Unknown]
  - Influenza like illness [Unknown]
  - Chills [Unknown]
  - Myalgia [Unknown]
  - Fatigue [Unknown]
  - Disturbance in attention [Unknown]
  - Mental status changes [Unknown]
  - Dizziness [Unknown]
  - Insomnia [Unknown]
  - Asthenia [Recovering/Resolving]
  - Dyspnoea [Unknown]
  - Weight decreased [Unknown]
  - Anxiety [Unknown]
  - Headache [Unknown]
  - Pain [Unknown]
  - Dysgeusia [Unknown]
  - Memory impairment [Not Recovered/Not Resolved]
  - Rash [Recovering/Resolving]
  - Lung infection [Not Recovered/Not Resolved]
  - Dyspnoea [Not Recovered/Not Resolved]
  - Chest pain [Not Recovered/Not Resolved]
  - Ear pain [Not Recovered/Not Resolved]
  - Fatigue [Not Recovered/Not Resolved]
  - Insomnia [Unknown]
  - Drug ineffective [Unknown]
  - Cough [Unknown]
  - Mental disorder [Unknown]
  - Disorientation [Unknown]
  - Confusional state [Unknown]
  - Non-cardiac chest pain [Unknown]
  - Cough [Unknown]
  - Chest pain [Unknown]
  - Anaemia [Recovering/Resolving]
  - Thirst [Unknown]
  - Urine output increased [Unknown]
  - Increased appetite [Unknown]
  - Fatigue [Recovering/Resolving]
  - Dyspnoea [Unknown]
  - Post-traumatic stress disorder [Unknown]
  - Insomnia [Unknown]
  - Thinking abnormal [Unknown]
  - Screaming [Unknown]
  - Headache [Unknown]
  - Pain [Unknown]
  - Memory impairment [Unknown]
  - Fatigue [Unknown]
  - Headache [Unknown]
  - Malaise [Unknown]
  - Insomnia [Unknown]
  - Agitation [Unknown]
  - Disturbance in attention [Unknown]
  - Confusional state [Unknown]
  - Dizziness [Unknown]
  - Dizziness [Unknown]
  - Pain [Unknown]
  - Anaemia [Recovering/Resolving]
  - Dyspnoea [Unknown]
  - Skin disorder [Unknown]
  - Haemoglobin decreased [Unknown]
  - Anxiety [Unknown]
  - Fatigue [Not Recovered/Not Resolved]
  - Drug ineffective [Unknown]
  - Solar lentigo [Unknown]
  - Blood test abnormal [Unknown]
